FAERS Safety Report 8053978-1 (Version None)
Quarter: 2012Q1

REPORT INFORMATION
  Report Type: 
  Country: None (occurrence: None)
  Receive Date: 20120118
  Receipt Date: 20120117
  Transmission Date: 20120608
  Serious: Yes (Other)
  Sender: FDA-Public Use
  Company Number: US-PFIZER INC-2012013961

PATIENT
  Age: 63 Year
  Sex: Female
  Weight: 72.6 kg

DRUGS (12)
  1. CORTISONE [Concomitant]
     Indication: BACK DISORDER
     Dosage: UNK, EVERY 3 MONTHS
  2. AMBIEN [Concomitant]
     Indication: SLEEP DISORDER
     Dosage: UNK
     Route: 048
  3. LEVAQUIN [Concomitant]
     Indication: PHARYNGITIS STREPTOCOCCAL
  4. LEVAQUIN [Concomitant]
     Indication: PNEUMONIA
  5. ZOLOFT [Suspect]
     Indication: ANXIETY
     Dosage: 100 MG, DAILY
  6. ZOLOFT [Suspect]
     Indication: DEPRESSION
     Dosage: 50 MG, DAILY
     Dates: end: 20110101
  7. SEROTONIN [Suspect]
     Indication: DEPRESSION
  8. LEVAQUIN [Concomitant]
     Indication: SINUSITIS
     Dosage: UNK
  9. CIPROFLOXACIN [Concomitant]
     Indication: PHARYNGITIS
  10. CIPROFLOXACIN [Concomitant]
     Indication: PNEUMONIA
  11. CIPROFLOXACIN [Concomitant]
     Indication: SINUSITIS
     Dosage: UNK
  12. SEROTONIN [Suspect]
     Indication: PANIC ATTACK
     Dosage: UNK
     Dates: start: 20120101

REACTIONS (4)
  - DRUG INEFFECTIVE [None]
  - DEPRESSION [None]
  - WEIGHT DECREASED [None]
  - PANIC ATTACK [None]
